FAERS Safety Report 13982534 (Version 1)
Quarter: 2017Q3

REPORT INFORMATION
  Report Type: Spontaneous
  Country: US (occurrence: US)
  Receive Date: 20170918
  Receipt Date: 20170918
  Transmission Date: 20171128
  Serious: No
  Sender: FDA-Public Use
  Company Number: US-LEADIANT BIOSCIENCES INC-2016STPI000593

PATIENT
  Age: 28 Year
  Sex: Female

DRUGS (6)
  1. COLACE [Concomitant]
     Active Substance: DOCUSATE SODIUM
  2. NEULASTA [Concomitant]
     Active Substance: PEGFILGRASTIM
  3. VINCRISTINE [Concomitant]
     Active Substance: VINCRISTINE
  4. SENNA                              /00142201/ [Concomitant]
     Active Substance: SENNA LEAF
  5. MATULANE [Suspect]
     Active Substance: PROCARBAZINE HYDROCHLORIDE
     Indication: BRAIN NEOPLASM MALIGNANT
     Dosage: 150 MG, QD
     Route: 048
     Dates: start: 20160326
  6. LOMUSTINE. [Concomitant]
     Active Substance: LOMUSTINE

REACTIONS (3)
  - Diarrhoea [Unknown]
  - Nausea [Unknown]
  - Constipation [Unknown]

NARRATIVE: CASE EVENT DATE: 2016
